FAERS Safety Report 5325903-5 (Version None)
Quarter: 2007Q2

REPORT INFORMATION
  Report Type: 
  Country: None (occurrence: None)
  Receive Date: 20070220
  Receipt Date: 20061207
  Transmission Date: 20071010
  Serious: No
  Sender: FDA-Public Use
  Company Number: WAES 0612USA01300

PATIENT
  Age: 72 Year
  Sex: Female

DRUGS (5)
  1. JANUVIA [Suspect]
     Indication: DIABETES MELLITUS
     Dosage: 100 MG/DAILY/PO
     Route: 048
     Dates: start: 20061107
  2. AVAPRO [Concomitant]
  3. DYNACIRC [Concomitant]
  4. ELAVIL [Concomitant]
  5. INSPRA [Concomitant]

REACTIONS (3)
  - INSOMNIA [None]
  - NASAL CONGESTION [None]
  - NERVOUSNESS [None]
